FAERS Safety Report 4570717-7 (Version None)
Quarter: 2005Q1

REPORT INFORMATION
  Report Type: 
  Country: None (occurrence: None)
  Receive Date: 20050202
  Receipt Date: 20050118
  Transmission Date: 20050727
  Serious: Yes (Hospitalization, Other)
  Sender: FDA-Public Use
  Company Number: PHHO2004JP15884

PATIENT
  Age: 65 Year
  Sex: Male

DRUGS (3)
  1. VERTEPORFIN [Suspect]
     Indication: MACULAR DEGENERATION
     Dosage: 4.8 ML IV
     Route: 042
     Dates: start: 20040917, end: 20040917
  2. AMLODIPINE BESYLATE [Concomitant]
  3. VALSARTAN [Concomitant]

REACTIONS (5)
  - CONDITION AGGRAVATED [None]
  - HYPHAEMA [None]
  - RETINAL HAEMORRHAGE [None]
  - VISUAL ACUITY REDUCED [None]
  - VITREOUS HAEMORRHAGE [None]
